FAERS Safety Report 7583468-1 (Version None)
Quarter: 2011Q2

REPORT INFORMATION
  Report Type: 
  Country: None (occurrence: None)
  Receive Date: 20110628
  Receipt Date: 20110628
  Transmission Date: 20111010
  Serious: Yes (Hospitalization)
  Sender: FDA-Public Use
  Company Number: None

PATIENT
  Sex: Female
  Weight: 78.18 kg

DRUGS (2)
  1. CARBOPLATIN [Suspect]
     Dosage: 506MG
     Dates: end: 20110509
  2. TAXOL [Suspect]
     Dosage: 336MG
     Dates: end: 20110509

REACTIONS (8)
  - DEHYDRATION [None]
  - VOMITING [None]
  - HYPERKALAEMIA [None]
  - NEUTROPENIA [None]
  - NAUSEA [None]
  - FLUID INTAKE REDUCED [None]
  - HYPOPHAGIA [None]
  - HYPONATRAEMIA [None]
